FAERS Safety Report 20916480 (Version 1)
Quarter: 2022Q2

REPORT INFORMATION
  Report Type: Spontaneous
  Country: US (occurrence: US)
  Receive Date: 20220604
  Receipt Date: 20220604
  Transmission Date: 20220721
  Serious: Yes (Hospitalization, Other)
  Sender: FDA-Public Use
  Company Number: None

PATIENT
  Age: 92 Year
  Sex: Female
  Weight: 62.5 kg

DRUGS (17)
  1. AZACITIDINE [Suspect]
     Active Substance: AZACITIDINE
     Indication: Myelodysplastic syndrome
     Dosage: DAY 1- 5, 8 TO 9 DAYS 1-7 OF EACH 28 DAY
     Route: 058
     Dates: start: 20211122, end: 20211228
  2. CEFDINIR [Concomitant]
     Active Substance: CEFDINIR
     Indication: Antibiotic prophylaxis
     Route: 048
     Dates: start: 20211206
  3. FLUCONAZOLE [Concomitant]
     Active Substance: FLUCONAZOLE
     Indication: Antifungal prophylaxis
     Route: 048
     Dates: start: 20211122
  4. FLONASE [Concomitant]
     Active Substance: FLUTICASONE PROPIONATE
     Indication: Sinus antrostomy
     Route: 045
     Dates: start: 2016
  5. SODIUM CHLORIDE [Concomitant]
     Active Substance: SODIUM CHLORIDE
     Indication: Chronic kidney disease
     Dosage: ONCE
     Route: 042
     Dates: start: 20211126, end: 20211126
  6. ELIQUIS [Concomitant]
     Active Substance: APIXABAN
     Indication: Atrial fibrillation
     Route: 048
     Dates: start: 2018
  7. LOSARTAN [Concomitant]
     Active Substance: LOSARTAN
     Indication: Hypertension
     Route: 048
     Dates: start: 2010
  8. SPIRIVA [Concomitant]
     Active Substance: TIOTROPIUM BROMIDE MONOHYDRATE
     Indication: Chronic obstructive pulmonary disease
     Route: 055
     Dates: start: 2010
  9. COLACE [Concomitant]
     Active Substance: DOCUSATE SODIUM
     Indication: Constipation
     Route: 048
  10. METOPROLOL SUCCINATE [Concomitant]
     Active Substance: METOPROLOL SUCCINATE
     Indication: Hypertension
     Route: 048
     Dates: start: 20211117
  11. ACYCLOVIR [Concomitant]
     Active Substance: ACYCLOVIR
     Indication: Antiviral prophylaxis
     Route: 048
     Dates: start: 20211122
  12. IZOFRAN [ONDANSETRON] [Concomitant]
     Indication: Nausea
     Route: 048
     Dates: start: 20211122
  13. IZOFRAN [ONDANSETRON] [Concomitant]
     Indication: Vomiting
  14. SENOKOT [Concomitant]
     Active Substance: SENNOSIDES
     Indication: Constipation
     Route: 048
     Dates: start: 20211201
  15. MIRALAX [Concomitant]
     Active Substance: POLYETHYLENE GLYCOL 3350
     Indication: Constipation
     Route: 048
     Dates: start: 20211201
  16. MECLIZINE HYDROCHLORIDE [Concomitant]
     Active Substance: MECLIZINE HYDROCHLORIDE
     Indication: Dizziness
     Route: 048
     Dates: start: 20211212
  17. IMODIUM [Concomitant]
     Active Substance: LOPERAMIDE HYDROCHLORIDE
     Indication: Diarrhoea
     Route: 048
     Dates: start: 20211125

REACTIONS (1)
  - Large intestine perforation [Recovered/Resolved]

NARRATIVE: CASE EVENT DATE: 20220117
